FAERS Safety Report 19553963 (Version 1)
Quarter: 2021Q3

REPORT INFORMATION
  Report Type: Other
  Country: GB (occurrence: GB)
  Receive Date: 20210714
  Receipt Date: 20210714
  Transmission Date: 20211014
  Serious: Yes (Hospitalization)
  Sender: FDA-Public Use
  Company Number: GB-NAVINTA LLC-000171

PATIENT
  Age: 26 Year
  Sex: Female

DRUGS (2)
  1. REMIFENTANIL [Suspect]
     Active Substance: REMIFENTANIL
     Indication: ORTHOGNATHIC SURGERY
  2. REMIFENTANIL [Suspect]
     Active Substance: REMIFENTANIL
     Indication: ANAESTHESIA

REACTIONS (3)
  - Intentional product use issue [Unknown]
  - Muscle rigidity [Unknown]
  - Malocclusion [Unknown]
